FAERS Safety Report 10179348 (Version 2)
Quarter: 2014Q2

REPORT INFORMATION
  Report Type: Spontaneous
  Country: US (occurrence: None)
  Receive Date: 20140515
  Receipt Date: 20140521
  Transmission Date: 20141212
  Serious: Yes (Other)
  Sender: FDA-Public Use
  Company Number: 2014-US-005523

PATIENT
  Age: 31 Year
  Sex: Female

DRUGS (2)
  1. XYREM [Suspect]
     Indication: NARCOLEPSY
     Route: 048
     Dates: start: 201404
  2. XYREM [Suspect]
     Indication: CATAPLEXY
     Route: 048
     Dates: start: 201404

REACTIONS (3)
  - Concussion [None]
  - Fall [None]
  - Loss of consciousness [None]
